FAERS Safety Report 16121466 (Version 2)
Quarter: 2019Q4

REPORT INFORMATION
  Report Type: Spontaneous
  Country: JP (occurrence: JP)
  Receive Date: 20190327
  Receipt Date: 20191008
  Transmission Date: 20200122
  Serious: Yes (Life-Threatening, Other)
  Sender: FDA-Public Use
  Company Number: JP-SA-2019SA071811

PATIENT
  Age: 40 Year
  Sex: Male

DRUGS (6)
  1. TRASTUZUMAB. [Suspect]
     Active Substance: TRASTUZUMAB
     Indication: BREAST CANCER RECURRENT
     Dosage: 8 MG/KG, Q3W
     Route: 065
  2. PACLITAXEL. [Suspect]
     Active Substance: PACLITAXEL
     Indication: APOCRINE BREAST CARCINOMA
     Dosage: 40 MG/M2 ON DAYS 1, 8, 15, 22, 29, AND 36) ADDED
     Route: 065
  3. TRASTUZUMAB. [Suspect]
     Active Substance: TRASTUZUMAB
     Dosage: 6 MG/KG, Q3W
     Route: 065
  4. PERTUZUMAB. [Suspect]
     Active Substance: PERTUZUMAB
     Indication: BREAST CANCER RECURRENT
     Dosage: 840 MG, Q3W
     Route: 065
  5. DOCETAXEL. [Suspect]
     Active Substance: DOCETAXEL
     Indication: BREAST CANCER RECURRENT
     Dosage: 75 MG/M2, Q3W
     Route: 065
  6. PERTUZUMAB. [Suspect]
     Active Substance: PERTUZUMAB
     Dosage: 420 MG, Q3W
     Route: 065

REACTIONS (6)
  - Alopecia [Unknown]
  - Radiation oesophagitis [Unknown]
  - Pneumonia bacterial [Unknown]
  - Febrile neutropenia [Unknown]
  - Therapeutic response decreased [Unknown]
  - Neutropenia [Unknown]
